FAERS Safety Report 24994421 (Version 1)
Quarter: 2025Q1

REPORT INFORMATION
  Report Type: Spontaneous
  Country: NL (occurrence: NL)
  Receive Date: 20250221
  Receipt Date: 20250221
  Transmission Date: 20250409
  Serious: Yes (Death, Hospitalization, Other)
  Sender: GILEAD
  Company Number: NL-VIIV HEALTHCARE-NL2024EME140080

PATIENT
  Sex: Female

DRUGS (4)
  1. LENACAPAVIR [Suspect]
     Active Substance: LENACAPAVIR
     Indication: Product used for unknown indication
     Route: 065
  2. VOCABRIA [Suspect]
     Active Substance: CABOTEGRAVIR SODIUM
     Indication: HIV infection
     Route: 065
  3. RILPIVIRINE [Suspect]
     Active Substance: RILPIVIRINE
     Indication: HIV infection
     Route: 065
  4. RILPIVIRINE [Suspect]
     Active Substance: RILPIVIRINE
     Route: 065

REACTIONS (8)
  - Multiple organ dysfunction syndrome [Fatal]
  - Pancreatitis [Not Recovered/Not Resolved]
  - Underweight [Unknown]
  - Virologic failure [Unknown]
  - Drug level decreased [Unknown]
  - Off label use [Unknown]
  - Product use in unapproved therapeutic environment [Unknown]
  - Labelled drug-drug interaction medication error [Unknown]
